FAERS Safety Report 6464844-7 (Version None)
Quarter: 2009Q4

REPORT INFORMATION
  Report Type: 
  Country: None (occurrence: None)
  Receive Date: 20091201
  Receipt Date: 20091123
  Transmission Date: 20100525
  Serious: Yes (Life-Threatening, Hospitalization, Other)
  Sender: FDA-Public Use
  Company Number: A0810010A

PATIENT
  Age: 56 Year
  Sex: Male
  Weight: 110 kg

DRUGS (7)
  1. ZOFRAN [Suspect]
     Indication: NAUSEA
     Dosage: 24MG UNKNOWN
     Route: 042
     Dates: start: 20090901, end: 20090901
  2. METHOTREXATE [Suspect]
     Indication: ACUTE LYMPHOCYTIC LEUKAEMIA
     Route: 042
     Dates: start: 20090901, end: 20090901
  3. QUINAPRIL [Concomitant]
     Dosage: 20MG PER DAY
     Route: 048
  4. ALLOPURINOL [Concomitant]
     Dosage: 300MG PER DAY
     Route: 048
  5. LIPITOR [Concomitant]
     Dosage: 10MG PER DAY
     Route: 048
  6. DIFLUCAN [Concomitant]
     Dosage: 200MG PER DAY
  7. VALTREX [Concomitant]
     Dosage: 500MG TWICE PER DAY
     Route: 048

REACTIONS (5)
  - ANAPHYLACTIC REACTION [None]
  - FEELING HOT [None]
  - HYPERHIDROSIS [None]
  - LOSS OF CONSCIOUSNESS [None]
  - SYNCOPE [None]
